FAERS Safety Report 5290469-5 (Version None)
Quarter: 2007Q2

REPORT INFORMATION
  Report Type: 
  Country: None (occurrence: None)
  Receive Date: 20070405
  Receipt Date: 20070405
  Transmission Date: 20071010
  Serious: No
  Sender: FDA-Public Use
  Company Number: None

PATIENT
  Age: 49 Year
  Sex: Female
  Weight: 61.6892 kg

DRUGS (1)
  1. IBUPROFEN [Suspect]
     Dosage: 200 MG Q 4-6 HRS
     Dates: start: 20070316

REACTIONS (4)
  - ABDOMINAL PAIN UPPER [None]
  - CHEST PAIN [None]
  - INCORRECT DOSE ADMINISTERED [None]
  - MEDICATION ERROR [None]
